FAERS Safety Report 8284071-0 (Version None)
Quarter: 2012Q2

REPORT INFORMATION
  Report Type: 
  Country: None (occurrence: None)
  Receive Date: 20120413
  Receipt Date: 20111221
  Transmission Date: 20120825
  Serious: No
  Sender: FDA-Public Use
  Company Number: US-ASTRAZENECA-2011SE32160

PATIENT
  Age: 47 Year
  Sex: Female

DRUGS (3)
  1. NEXIUM [Suspect]
     Route: 048
  2. NEXIUM [Suspect]
     Route: 048
  3. NEXIUM [Suspect]
     Route: 048

REACTIONS (15)
  - DRUG DOSE OMISSION [None]
  - BACK DISORDER [None]
  - ADVERSE DRUG REACTION [None]
  - INTENTIONAL DRUG MISUSE [None]
  - GASTROOESOPHAGEAL REFLUX DISEASE [None]
  - WRONG TECHNIQUE IN DRUG USAGE PROCESS [None]
  - DYSPEPSIA [None]
  - CYSTITIS [None]
  - APHONIA [None]
  - DRUG HYPERSENSITIVITY [None]
  - SOMNOLENCE [None]
  - LARYNGITIS [None]
  - FOREIGN BODY [None]
  - URTICARIA PAPULAR [None]
  - MALAISE [None]
